FAERS Safety Report 7786177-9 (Version None)
Quarter: 2011Q3

REPORT INFORMATION
  Report Type: 
  Country: None (occurrence: None)
  Receive Date: 20110929
  Receipt Date: 20110919
  Transmission Date: 20111222
  Serious: Yes (Death, Hospitalization, Other)
  Sender: FDA-Public Use
  Company Number: JP-GENZYME-FABR-1002124

PATIENT
  Sex: Male
  Weight: 50 kg

DRUGS (10)
  1. WARFARIN SODIUM [Concomitant]
     Dosage: 3.5 MG, QD
  2. CARBAMAZEPINE [Concomitant]
     Indication: PRODUCT USED FOR UNKNOWN INDICATION
     Dosage: 100 MG, QD
  3. PREDNISOLONE [Concomitant]
     Indication: PREMEDICATION
     Dosage: 30 MG, UNK
     Dates: start: 20110723
  4. IMIDAPRIL HYDROCHLORIDE [Concomitant]
     Indication: PRODUCT USED FOR UNKNOWN INDICATION
     Dosage: 5 MG, QD
  5. FABRAZYME [Suspect]
     Indication: FABRY'S DISEASE
     Dosage: 50 MG, UNK
     Route: 042
     Dates: start: 20040709, end: 20110723
  6. HYDROXYZINE [Concomitant]
     Indication: PREMEDICATION
     Dosage: 25 MG, UNK
     Dates: start: 20110723
  7. BEPRIDIL HYDROCHLORIDE MONOHYDRATE [Concomitant]
     Indication: PRODUCT USED FOR UNKNOWN INDICATION
     Dosage: 150 MG, QD
  8. WARFARIN SODIUM [Concomitant]
     Indication: PRODUCT USED FOR UNKNOWN INDICATION
     Dosage: 3 MG, QD
  9. LOXOPROFEN SODIUM [Concomitant]
     Indication: PREMEDICATION
     Dosage: 60 MG, UNK
     Dates: start: 20110723
  10. TRICHLORMETHIAZIDE [Concomitant]
     Indication: PRODUCT USED FOR UNKNOWN INDICATION
     Dosage: 2 MG, QD

REACTIONS (3)
  - CARDIAC FAILURE [None]
  - SEPTIC SHOCK [None]
  - ATRIAL FIBRILLATION [None]
